FAERS Safety Report 7811462-1 (Version None)
Quarter: 2011Q4

REPORT INFORMATION
  Report Type: 
  Country: None (occurrence: None)
  Receive Date: 20111013
  Receipt Date: 20111011
  Transmission Date: 20120403
  Serious: Yes (Death, Life-Threatening, Other)
  Sender: FDA-Public Use
  Company Number: JP-B.I. PHARMACEUTICALS,INC./RIDGEFIELD-2011-BP-21978NB

PATIENT
  Sex: Male
  Weight: 59 kg

DRUGS (12)
  1. ROZEREM [Concomitant]
     Dosage: 8 MG
     Route: 048
     Dates: start: 20110723, end: 20110910
  2. BISOPROLOL FUMARATE [Concomitant]
     Dosage: 2.5 MG
     Route: 048
     Dates: start: 20110629, end: 20110911
  3. BIO-THREE [Concomitant]
     Route: 065
     Dates: end: 20110911
  4. CEFDINIR [Concomitant]
     Indication: INFECTION
     Dosage: 200 MG
     Route: 065
     Dates: start: 20110831, end: 20110910
  5. PRADAXA [Suspect]
     Indication: ATRIAL FIBRILLATION
     Dosage: 220 MG
     Route: 048
     Dates: start: 20110802, end: 20110908
  6. RISPERDAL [Concomitant]
     Dosage: 0.5 MG
     Route: 048
     Dates: start: 20110705, end: 20110911
  7. BIOFERMIN [Concomitant]
     Dosage: 3 G
     Route: 048
     Dates: start: 20110703, end: 20110831
  8. LANSOPRAZOLE [Concomitant]
     Dosage: 15 MG
     Route: 048
     Dates: start: 20110630, end: 20110911
  9. GASMOTIN [Concomitant]
     Dosage: 15 MG
     Route: 048
     Dates: start: 20110707, end: 20110911
  10. EQUA [Concomitant]
     Dosage: 100 MG
     Route: 048
     Dates: start: 20110811, end: 20110908
  11. VERAPAMIL HCL [Concomitant]
     Dosage: 80 MG
     Route: 048
     Dates: start: 20110630, end: 20110911
  12. DIGOXIN [Concomitant]
     Route: 048
     Dates: start: 20110716, end: 20110911

REACTIONS (9)
  - HAEMATURIA [None]
  - HAEMOPTYSIS [None]
  - HAEMATOCHEZIA [None]
  - MOUTH HAEMORRHAGE [None]
  - HAEMORRHAGE [None]
  - MELAENA [None]
  - ANAEMIA [None]
  - SHOCK HAEMORRHAGIC [None]
  - RENAL IMPAIRMENT [None]
